FAERS Safety Report 10217132 (Version 1)
Quarter: 2014Q2

REPORT INFORMATION
  Report Type: Report from Study
  Country: AR (occurrence: AR)
  Receive Date: 20140604
  Receipt Date: 20140604
  Transmission Date: 20141212
  Serious: Yes (Other)
  Sender: FDA-Public Use
  Company Number: PHHY2014AR068283

PATIENT
  Age: 70 Year
  Sex: Female

DRUGS (1)
  1. EXFORGE [Suspect]
     Indication: HYPERTENSION
     Dosage: 1 DF, DAILY
     Route: 048
     Dates: start: 2009, end: 201301

REACTIONS (5)
  - Fall [Recovered/Resolved]
  - Upper limb fracture [Recovered/Resolved]
  - Blood pressure increased [Recovered/Resolved]
  - Blood pressure inadequately controlled [Recovered/Resolved]
  - Oedema peripheral [Recovered/Resolved]
